FAERS Safety Report 7032173-9 (Version None)
Quarter: 2010Q4

REPORT INFORMATION
  Report Type: 
  Country: None (occurrence: None)
  Receive Date: 20101007
  Receipt Date: 20100617
  Transmission Date: 20110411
  Serious: Yes (Death, Hospitalization)
  Sender: FDA-Public Use
  Company Number: US-BRISTOL-MYERS SQUIBB COMPANY-14952469

PATIENT
  Age: 68 Year
  Sex: Male
  Weight: 64 kg

DRUGS (2)
  1. CETUXIMAB [Suspect]
     Indication: NON-SMALL CELL LUNG CANCER STAGE IV
     Route: 042
  2. EVEROLIMUS [Suspect]
     Indication: NON-SMALL CELL LUNG CANCER STAGE IV

REACTIONS (1)
  - ACUTE RESPIRATORY DISTRESS SYNDROME [None]
